FAERS Safety Report 22097802 (Version 1)
Quarter: 2023Q1

REPORT INFORMATION
  Report Type: Report from Study
  Country: US (occurrence: US)
  Receive Date: 20230315
  Receipt Date: 20230315
  Transmission Date: 20230417
  Serious: Yes (Death)
  Sender: FDA-Public Use
  Company Number: US-PFIZER INC-202300104485

PATIENT
  Age: 20 Month
  Sex: Male

DRUGS (1)
  1. FENTANYL CITRATE [Suspect]
     Active Substance: FENTANYL CITRATE
     Dosage: UNK

REACTIONS (9)
  - Toxicity to various agents [Fatal]
  - Respiratory depression [Fatal]
  - Depressed level of consciousness [Fatal]
  - Cardiac arrest [Fatal]
  - Brain death [Fatal]
  - Hypertension [Fatal]
  - Tachycardia [Fatal]
  - Bradypnoea [Fatal]
  - Coma [Fatal]

NARRATIVE: CASE EVENT DATE: 20210101
